FAERS Safety Report 24048409 (Version 1)
Quarter: 2024Q3

REPORT INFORMATION
  Report Type: Spontaneous
  Country: US (occurrence: US)
  Receive Date: 20240704
  Receipt Date: 20240704
  Transmission Date: 20241017
  Serious: No
  Sender: ROCHE
  Company Number: US-ROCHE-3528346

PATIENT
  Age: 12 Year
  Sex: Female
  Weight: 27.22 kg

DRUGS (1)
  1. NUTROPIN AQ [Suspect]
     Active Substance: SOMATROPIN
     Indication: Blood growth hormone
     Dosage: 1.1MG AT NIGHT ;ONGOING: YES?STRENGTH 10 MG/2 ML
     Route: 058
     Dates: start: 20230920

REACTIONS (3)
  - Injection site pain [Recovered/Resolved]
  - Device difficult to use [Unknown]
  - Injection site haemorrhage [Unknown]

NARRATIVE: CASE EVENT DATE: 20240314
